FAERS Safety Report 5249948-9 (Version None)
Quarter: 2007Q1

REPORT INFORMATION
  Report Type: 
  Country: None (occurrence: None)
  Receive Date: 20070228
  Receipt Date: 20060109
  Transmission Date: 20070707
  Serious: No
  Sender: FDA-Public Use
  Company Number: US-GLAXOSMITHKLINE-A0588375A

PATIENT
  Age: 58 Year
  Sex: Female

DRUGS (7)
  1. LAMICTAL [Suspect]
     Indication: BIPOLAR DISORDER
     Dosage: 5MG PER DAY
     Route: 048
     Dates: start: 20040101, end: 20061101
  2. TRILEPTAL [Concomitant]
  3. AMITRIPTYLINE HCL [Concomitant]
  4. KLONOPIN [Concomitant]
  5. LEVOTHYROXINE SODIUM [Concomitant]
  6. TEMAZEPAM [Concomitant]
  7. AMBIEN [Concomitant]

REACTIONS (2)
  - INSOMNIA [None]
  - NAUSEA [None]
